FAERS Safety Report 16201926 (Version 2)
Quarter: 2019Q2

REPORT INFORMATION
  Report Type: Spontaneous
  Country: CH (occurrence: CH)
  Receive Date: 20190416
  Receipt Date: 20190422
  Transmission Date: 20190711
  Serious: Yes (Hospitalization, Other)
  Sender: FDA-Public Use
  Company Number: CH-MYLANLABS-2019M1034860

PATIENT
  Age: 81 Year
  Sex: Female
  Weight: 59 kg

DRUGS (24)
  1. TOREM [Suspect]
     Active Substance: TORSEMIDE
     Indication: PRODUCT USED FOR UNKNOWN INDICATION
     Dosage: 5 MILLIGRAM, PRN (TOREM 5-10 MG/DIE AB 12.01.2019 NACH BEDARF, BZW.
     Dates: start: 20190112
  2. TAZOBACTAM [Suspect]
     Active Substance: TAZOBACTAM
     Indication: PRODUCT USED FOR UNKNOWN INDICATION
     Dosage: 4.5 GRAM, Q8H
     Route: 041
     Dates: start: 20190116, end: 20190124
  3. CONCOR [Concomitant]
     Active Substance: BISOPROLOL FUMARATE
     Dosage: 5 MILLIGRAM, BID
  4. CO AMOXI                           /00756801/ [Concomitant]
     Dosage: UNK
     Dates: start: 20190115, end: 20190116
  5. METHOTREXATE. [Suspect]
     Active Substance: METHOTREXATE
     Indication: PRODUCT USED FOR UNKNOWN INDICATION
     Dosage: 17.5 MILLIGRAM, QW (1X EVERY 8 DAYS)
     Route: 058
     Dates: start: 201410, end: 20190111
  6. FOLVITE [Concomitant]
     Active Substance: FOLIC ACID
     Dosage: 5 MILLIGRAM, QW
     Dates: start: 201410, end: 20190111
  7. PANTOZOL [Interacting]
     Active Substance: PANTOPRAZOLE SODIUM
     Indication: PRODUCT USED FOR UNKNOWN INDICATION
     Dosage: 40 MILLIGRAM (PANTOZOL 40MG TBL. 1-0-0 BIS 24.01.2019
     Route: 048
  8. PREDNISONE. [Suspect]
     Active Substance: PREDNISONE
     Dosage: 40 MILLIGRAM, QD
     Route: 048
     Dates: start: 20190122
  9. SYMBICORT [Concomitant]
     Active Substance: BUDESONIDE\FORMOTEROL FUMARATE DIHYDRATE
     Dosage: 1 DOSAGE FORM, BID
     Dates: end: 20190118
  10. BECOZYME C FORTE [Concomitant]
     Dosage: UNK
  11. PREDNISONE. [Suspect]
     Active Substance: PREDNISONE
     Dosage: 80 MILLIGRAM, QD
     Route: 048
     Dates: start: 20190118, end: 20190121
  12. MYRTAVEN [Concomitant]
     Dosage: UNK
  13. DAFALGAN [Interacting]
     Active Substance: ACETAMINOPHEN
     Indication: PRODUCT USED FOR UNKNOWN INDICATION
     Dosage: UNK UNK, TID (1-1-1)
  14. PREDNISONE. [Suspect]
     Active Substance: PREDNISONE
     Indication: PRODUCT USED FOR UNKNOWN INDICATION
     Dosage: 2.5 MILLIGRAM, QD
     Route: 048
     Dates: end: 20190112
  15. PREDNISONE. [Suspect]
     Active Substance: PREDNISONE
     Dosage: 5 MILLIGRAM, QD
     Route: 048
     Dates: start: 20190113, end: 20190117
  16. VALTREX [Concomitant]
     Active Substance: VALACYCLOVIR HYDROCHLORIDE
     Dosage: 500 MILLIGRAM, BID
     Dates: start: 20190116
  17. VI DE 3 [Concomitant]
     Dosage: UNK
  18. CO VALSARTAN                       /01319601/ [Concomitant]
     Dosage: 80 MILLIGRAM, QD (1-0-0)
     Dates: end: 20190113
  19. LATANOPROST. [Concomitant]
     Active Substance: LATANOPROST
     Dosage: UNK
  20. CEFTRIAXONE. [Concomitant]
     Active Substance: CEFTRIAXONE
     Dosage: UNK
     Dates: start: 20190113, end: 20190115
  21. MARCOUMAR [Suspect]
     Active Substance: PHENPROCOUMON
     Indication: PRODUCT USED FOR UNKNOWN INDICATION
     Dosage: MARCOUMAR 3MG N ACH INR (SEQUENZ: 6X 1/4, 1X 1/2) PAUSE AB 11.01.2019 BEI INR 4.4,
     Dates: end: 20190111
  22. NOPIL [Interacting]
     Active Substance: SULFAMETHOXAZOLE\TRIMETHOPRIM
     Indication: PRODUCT USED FOR UNKNOWN INDICATION
     Dosage: 1600 MILLIGRAM, Q8H
     Dates: start: 20190117
  23. SEROPRAM (CITALOPRAM HYDROBROMIDE) [Suspect]
     Active Substance: CITALOPRAM HYDROBROMIDE
     Indication: PRODUCT USED FOR UNKNOWN INDICATION
     Dosage: 20 MILLIGRAM, QD (CITALOPRAM 20MG TBL. 1-0-0, AB 11.01.2019 SEROPRAM)
  24. DIGOXIN. [Concomitant]
     Active Substance: DIGOXIN
     Dosage: 0.25 MILLIGRAM, QD
     Dates: start: 20190112, end: 20190121

REACTIONS (3)
  - Pancytopenia [Recovered/Resolved]
  - Drug interaction [Recovered/Resolved]
  - Upper gastrointestinal haemorrhage [Recovered/Resolved]

NARRATIVE: CASE EVENT DATE: 20190111
